FAERS Safety Report 6092372-X (Version None)
Quarter: 2009Q1

REPORT INFORMATION
  Report Type: 
  Country: None (occurrence: None)
  Receive Date: 20090223
  Receipt Date: 20090223
  Transmission Date: 20090719
  Serious: Yes (Disabling)
  Sender: FDA-Public Use
  Company Number: None

PATIENT
  Sex: Female
  Weight: 54.4316 kg

DRUGS (6)
  1. LEVAQUIN [Suspect]
     Indication: SINUSITIS
     Dosage: 500 MG 1X DAILY 047
     Dates: start: 20070308, end: 20070401
  2. NASONEX [Suspect]
     Indication: SINUSITIS
     Dosage: 50 MCG, 2 SPRAYS 1X DAILY 049
     Dates: start: 20070307, end: 20070409
  3. PRILOSEC [Concomitant]
  4. CLARITIN [Concomitant]
  5. METROCREAM [Concomitant]
  6. PROBIOTIC [Concomitant]

REACTIONS (31)
  - ABDOMINAL PAIN LOWER [None]
  - ABDOMINAL PAIN UPPER [None]
  - ARTHRALGIA [None]
  - BLADDER PAIN [None]
  - BURNING SENSATION [None]
  - CHEST PAIN [None]
  - CREPITATIONS [None]
  - DEPERSONALISATION [None]
  - DIARRHOEA [None]
  - DISSOCIATION [None]
  - FEELING ABNORMAL [None]
  - FORMICATION [None]
  - INDIFFERENCE [None]
  - MUSCLE SPASMS [None]
  - MUSCLE TWITCHING [None]
  - NERVOUS SYSTEM DISORDER [None]
  - OEDEMA PERIPHERAL [None]
  - PAIN [None]
  - PAIN IN EXTREMITY [None]
  - PELVIC PAIN [None]
  - PHOTOPSIA [None]
  - PRURITUS [None]
  - RASH ERYTHEMATOUS [None]
  - SENSATION OF HEAVINESS [None]
  - SWELLING [None]
  - TENDON DISORDER [None]
  - TENDONITIS [None]
  - TINNITUS [None]
  - URINARY TRACT PAIN [None]
  - VERTIGO [None]
  - VISUAL IMPAIRMENT [None]
